FAERS Safety Report 8406731-0 (Version None)
Quarter: 2012Q2

REPORT INFORMATION
  Report Type: 
  Country: None (occurrence: None)
  Receive Date: 20120604
  Receipt Date: 20120525
  Transmission Date: 20120825
  Serious: Yes (Other)
  Sender: FDA-Public Use
  Company Number: GB-ABBOTT-12P-167-0935566-00

PATIENT
  Age: 69 Year
  Sex: Male

DRUGS (4)
  1. CLARITHROMYCIN [Suspect]
     Indication: HELICOBACTER GASTRITIS
     Dates: start: 20120501
  2. OMEPRAZOLE [Concomitant]
     Indication: PRODUCT USED FOR UNKNOWN INDICATION
  3. NEXAVAR [Suspect]
     Indication: PRODUCT USED FOR UNKNOWN INDICATION
     Dates: start: 20120501
  4. AMOXICILLIN [Suspect]
     Indication: HELICOBACTER GASTRITIS
     Dates: start: 20120501

REACTIONS (6)
  - HYPERHIDROSIS [None]
  - ANAPHYLACTIC REACTION [None]
  - BRONCHOSPASM [None]
  - HYPERSENSITIVITY [None]
  - DYSPNOEA [None]
  - ANGIOEDEMA [None]
